FAERS Safety Report 9696071 (Version 1)
Quarter: 2013Q4

REPORT INFORMATION
  Report Type: Spontaneous
  Country: BR (occurrence: BR)
  Receive Date: 20131119
  Receipt Date: 20131119
  Transmission Date: 20140711
  Serious: Yes (Other)
  Sender: FDA-Public Use
  Company Number: BR-009507513-1311BRA007050

PATIENT
  Age: 48 Year
  Sex: Female
  Weight: 75 kg

DRUGS (2)
  1. NASONEX [Suspect]
     Indication: RHINITIS ALLERGIC
     Dosage: 1 DF, QD
     Route: 045
     Dates: start: 2000
  2. NASONEX [Suspect]
     Indication: NASAL DECONGESTION THERAPY

REACTIONS (8)
  - Caesarean section [Unknown]
  - Pregnancy with advanced maternal age [Unknown]
  - Uterine leiomyoma [Unknown]
  - Myomectomy [Unknown]
  - Nasal congestion [Not Recovered/Not Resolved]
  - Exposure during pregnancy [Unknown]
  - Drug ineffective [Unknown]
  - Product quality issue [Unknown]
